FAERS Safety Report 15618351 (Version 4)
Quarter: 2019Q4

REPORT INFORMATION
  Report Type: Spontaneous
  Country: US (occurrence: US)
  Receive Date: 20181114
  Receipt Date: 20191028
  Transmission Date: 20200122
  Serious: No
  Sender: FDA-Public Use
  Company Number: US-PFIZER INC-2018459446

PATIENT
  Age: 63 Year
  Sex: Male
  Weight: 75.3 kg

DRUGS (5)
  1. XELJANZ [Suspect]
     Active Substance: TOFACITINIB CITRATE
     Dosage: 10 MG, 2X/DAY
     Route: 048
     Dates: start: 201812
  2. APRISO [Concomitant]
     Active Substance: MESALAMINE
     Indication: PROCTITIS ULCERATIVE
     Dosage: 1.5 G, DAILY [0.375 GRAMS 4 A DAY]
     Dates: start: 201907
  3. XELJANZ [Suspect]
     Active Substance: TOFACITINIB CITRATE
     Indication: COLITIS ULCERATIVE
     Dosage: 10 MG, 2X/DAY
     Route: 048
     Dates: start: 2018, end: 2018
  4. TERAZOSIN [Concomitant]
     Active Substance: TERAZOSIN HYDROCHLORIDE
     Dosage: 2 MG, 1X/DAY
     Dates: start: 2017
  5. DICYCLOMINE [Concomitant]
     Active Substance: DICYCLOMINE HYDROCHLORIDE
     Indication: PROCTITIS ULCERATIVE
     Dosage: 10 MG, 3X/DAY
     Dates: start: 201909

REACTIONS (5)
  - Abdominal distension [Unknown]
  - Diarrhoea [Unknown]
  - Memory impairment [Recovering/Resolving]
  - Headache [Unknown]
  - Therapeutic product effect delayed [Unknown]

NARRATIVE: CASE EVENT DATE: 2018
